FAERS Safety Report 25645030 (Version 1)
Quarter: 2025Q3

REPORT INFORMATION
  Report Type: Spontaneous
  Country: EU (occurrence: EU)
  Receive Date: 20250805
  Receipt Date: 20250805
  Transmission Date: 20251020
  Serious: Yes (Death, Hospitalization, Other)
  Sender: AMGEN
  Company Number: EU-AMGEN-DNKSP2025151491

PATIENT

DRUGS (1)
  1. ADALIMUMAB [Suspect]
     Active Substance: ADALIMUMAB
     Indication: Colitis ulcerative
     Route: 065

REACTIONS (8)
  - Death [Fatal]
  - Colitis ulcerative [Unknown]
  - Neoplasm malignant [Unknown]
  - Lung neoplasm malignant [Unknown]
  - Skin cancer [Unknown]
  - Breast cancer [Unknown]
  - Malignant urinary tract neoplasm [Unknown]
  - Colorectal cancer [Unknown]
